FAERS Safety Report 9783118 (Version 1)
Quarter: 2013Q4

REPORT INFORMATION
  Report Type: Spontaneous
  Country: US (occurrence: US)
  Receive Date: 20131226
  Receipt Date: 20131226
  Transmission Date: 20140711
  Serious: Yes (Other)
  Sender: FDA-Public Use
  Company Number: US-PFIZER INC-2013368158

PATIENT
  Age: 59 Year
  Sex: Female
  Weight: 72.56 kg

DRUGS (5)
  1. LYRICA [Suspect]
     Indication: FIBROMYALGIA
     Dosage: 150 MG, 3X/DAY
     Route: 048
     Dates: end: 201311
  2. DILAUDID [Concomitant]
     Dosage: UNK
  3. EFFEXOR-XR [Concomitant]
     Dosage: UNK
  4. TRAZODONE [Concomitant]
     Dosage: UNK
  5. PROTONIX [Concomitant]
     Dosage: UNK
     Dates: end: 2013

REACTIONS (7)
  - Neoplasm malignant [Unknown]
  - Anxiety [Unknown]
  - Depression [Unknown]
  - Anaemia [Unknown]
  - Drug withdrawal syndrome [Unknown]
  - Tremor [Unknown]
  - Nausea [Unknown]
